FAERS Safety Report 6415895-X (Version None)
Quarter: 2009Q4

REPORT INFORMATION
  Report Type: 
  Country: None (occurrence: None)
  Receive Date: 20091027
  Receipt Date: 20091020
  Transmission Date: 20100525
  Serious: Yes (Hospitalization)
  Sender: FDA-Public Use
  Company Number: A0781676A

PATIENT
  Age: 64 Year
  Sex: Male

DRUGS (10)
  1. AVANDIA [Suspect]
     Indication: DIABETES MELLITUS
     Dosage: 8MG PER DAY
     Route: 048
     Dates: start: 20040121, end: 20070101
  2. TOPROL-XL [Concomitant]
  3. LEXAPRO [Concomitant]
  4. ALEVE [Concomitant]
  5. GLUCOVANCE [Concomitant]
  6. LIPITOR [Concomitant]
  7. LASIX [Concomitant]
  8. KDUR [Concomitant]
  9. LISINOPRIL [Concomitant]
  10. ALDACTONE [Concomitant]

REACTIONS (6)
  - BLINDNESS [None]
  - CARDIAC FAILURE CONGESTIVE [None]
  - ISCHAEMIC CARDIOMYOPATHY [None]
  - MYOCARDIAL INFARCTION [None]
  - MYOCARDIAL ISCHAEMIA [None]
  - PULMONARY HYPERTENSION [None]
